FAERS Safety Report 21625838 (Version 1)
Quarter: 2022Q4

REPORT INFORMATION
  Report Type: Spontaneous
  Country: US (occurrence: US)
  Receive Date: 20221122
  Receipt Date: 20221122
  Transmission Date: 20230113
  Serious: No
  Sender: FDA-Public Use
  Company Number: US-INSMED, INC.-2022-01495-US

PATIENT
  Age: 14 Year
  Sex: Male

DRUGS (1)
  1. ARIKAYCE [Suspect]
     Active Substance: AMIKACIN
     Indication: Microcephaly
     Dosage: 590 MILLIGRAM, QD
     Route: 055
     Dates: start: 20220505, end: 202205

REACTIONS (4)
  - Pyrexia [Unknown]
  - Illness [Unknown]
  - Product administered to patient of inappropriate age [Unknown]
  - Off label use [Unknown]

NARRATIVE: CASE EVENT DATE: 20220501
